FAERS Safety Report 8052554-4 (Version None)
Quarter: 2011Q4

REPORT INFORMATION
  Report Type: 
  Country: None (occurrence: None)
  Receive Date: 20111223
  Receipt Date: 20111212
  Transmission Date: 20120403
  Serious: Yes (Other)
  Sender: FDA-Public Use
  Company Number: AECAN201100354

PATIENT
  Age: 19 Year
  Sex: Female

DRUGS (2)
  1. HYDROXYCHLOROQUINE SULFATE [Suspect]
     Indication: ANGIOEDEMA
  2. IGIV (MANUFACTURER UNKNWON) (IMMUNE GLOBULIN IV (HUMAN), CAPRYLATE/CHR [Suspect]
     Indication: ANGIOEDEMA
     Dosage: IV
     Route: 042

REACTIONS (3)
  - UNEVALUABLE EVENT [None]
  - CONVULSION [None]
  - POSTERIOR REVERSIBLE ENCEPHALOPATHY SYNDROME [None]
